FAERS Safety Report 21445366 (Version 2)
Quarter: 2022Q4

REPORT INFORMATION
  Report Type: Spontaneous
  Country: DE (occurrence: DE)
  Receive Date: 20221012
  Receipt Date: 20221021
  Transmission Date: 20230113
  Serious: Yes (Life-Threatening, Hospitalization, Other)
  Sender: FDA-Public Use
  Company Number: None

PATIENT
  Age: 59 Year
  Sex: Female
  Weight: 86 kg

DRUGS (7)
  1. VENLAFAXINE [Suspect]
     Active Substance: VENLAFAXINE HYDROCHLORIDE
     Indication: Depression
     Dosage: 1-0-0, ADMINISTRATION / USE FOR OVER 10 YEARS
     Route: 048
     Dates: end: 20220909
  2. BISOPROLOL [Concomitant]
     Active Substance: BISOPROLOL
     Indication: Product used for unknown indication
     Dosage: 1-0-1; MORE THAN 1.5 MONTHS
     Route: 048
  3. CANDESARTAN [Concomitant]
     Active Substance: CANDESARTAN
     Indication: Product used for unknown indication
     Dosage: 1-0-0; MORE THAN 1.5 MONTH
     Route: 048
  4. DAPAGLIFLOZIN [Concomitant]
     Active Substance: DAPAGLIFLOZIN
     Indication: Product used for unknown indication
     Dosage: 1-0-0; MORE THAN 1.5 MONTHS
     Route: 048
  5. MARCUMAR [Concomitant]
     Active Substance: PHENPROCOUMON
     Indication: Product used for unknown indication
     Dosage: DOSAGE AS PER INR, MORE THAN 1.5 MONTHS
     Route: 048
  6. SIMVASTATIN [Concomitant]
     Active Substance: SIMVASTATIN
     Indication: Product used for unknown indication
     Dosage: 0-0-1
     Route: 048
  7. TORSEMIDE [Concomitant]
     Active Substance: TORSEMIDE
     Indication: Product used for unknown indication
     Dosage: 1-0-0, NEW IN ADMINISTRATION /USE
     Route: 048

REACTIONS (12)
  - Unresponsive to stimuli [Recovering/Resolving]
  - Cyanosis [Recovering/Resolving]
  - Hyperhidrosis [Recovering/Resolving]
  - Ventricular fibrillation [Recovering/Resolving]
  - Supraventricular extrasystoles [Recovering/Resolving]
  - Ventricular tachycardia [Recovering/Resolving]
  - Electrocardiogram QT prolonged [Recovering/Resolving]
  - Circulatory collapse [Recovering/Resolving]
  - Ventricular extrasystoles [Recovering/Resolving]
  - Sinus rhythm [Recovering/Resolving]
  - Palpitations [Recovering/Resolving]
  - Torsade de pointes [Recovering/Resolving]

NARRATIVE: CASE EVENT DATE: 20220909
